FAERS Safety Report 5962559-2 (Version None)
Quarter: 2008Q4

REPORT INFORMATION
  Report Type: 
  Country: None (occurrence: None)
  Receive Date: 20081121
  Receipt Date: 20081111
  Transmission Date: 20090506
  Serious: Yes (Other)
  Sender: FDA-Public Use
  Company Number: IT-PFIZER INC-2008095669

PATIENT
  Age: 69 Year
  Sex: Male

DRUGS (10)
  1. PREGABALIN [Suspect]
  2. FUROSEMIDE [Concomitant]
  3. BISOPROLOL FUMARATE [Concomitant]
  4. NITROGLYCERIN [Concomitant]
  5. EPLERENONE [Concomitant]
  6. ATORVASTATIN CALCIUM [Concomitant]
  7. LANSOPRAZOLE [Concomitant]
  8. INSULIN [Concomitant]
  9. DILTIAZEM HCL [Concomitant]
  10. NICORANDIL [Concomitant]

REACTIONS (1)
  - CARDIAC FAILURE [None]
